FAERS Safety Report 8334598-8 (Version None)
Quarter: 2012Q2

REPORT INFORMATION
  Report Type: 
  Country: None (occurrence: None)
  Receive Date: 20120503
  Receipt Date: 20120424
  Transmission Date: 20120825
  Serious: Yes (Disabling)
  Sender: FDA-Public Use
  Company Number: DE-US-EMD SERONO, INC.-7127947

PATIENT
  Sex: Female

DRUGS (3)
  1. CITALOPRAM HYDROBROMIDE [Concomitant]
     Indication: DEPRESSION
     Route: 048
     Dates: start: 20120227
  2. REBIF [Suspect]
     Indication: MULTIPLE SCLEROSIS
     Route: 058
     Dates: start: 20120201
  3. LYRICA [Concomitant]
     Indication: PAIN
     Route: 048
     Dates: start: 20120227

REACTIONS (4)
  - HYPERPATHIA [None]
  - PRURITUS GENERALISED [None]
  - SKIN EXFOLIATION [None]
  - FATIGUE [None]
